FAERS Safety Report 9379131 (Version 1)
Quarter: 2013Q2

REPORT INFORMATION
  Report Type: Spontaneous
  Country: US (occurrence: None)
  Receive Date: 20130626
  Receipt Date: 20130626
  Transmission Date: 20140414
  Serious: Yes (Other)
  Sender: FDA-Public Use
  Company Number: 001553726A

PATIENT
  Age: 19 Year
  Sex: Female

DRUGS (1)
  1. PROACTIV REPAIRING TREATMENT [Suspect]
     Indication: ACNE
     Dosage: ONCE DAILY DERMAL
     Dates: start: 20130207

REACTIONS (2)
  - Swelling face [None]
  - Erythema [None]
